FAERS Safety Report 9835265 (Version 1)
Quarter: 2014Q1

REPORT INFORMATION
  Report Type: Spontaneous
  Country: US (occurrence: US)
  Receive Date: 20140122
  Receipt Date: 20140122
  Transmission Date: 20141002
  Serious: No
  Sender: FDA-Public Use
  Company Number: US-BRISTOL-MYERS SQUIBB COMPANY-19906841

PATIENT
  Age: 83 Year
  Sex: Female
  Weight: 69.84 kg

DRUGS (1)
  1. ELIQUIS [Suspect]

REACTIONS (6)
  - Epistaxis [Unknown]
  - Gait disturbance [Unknown]
  - Myalgia [Unknown]
  - Dyspnoea [Unknown]
  - Pain in extremity [Unknown]
  - Local swelling [Not Recovered/Not Resolved]
